FAERS Safety Report 16531407 (Version 1)
Quarter: 2019Q3

REPORT INFORMATION
  Report Type: Spontaneous
  Country: DE (occurrence: DE)
  Receive Date: 20190704
  Receipt Date: 20190704
  Transmission Date: 20191004
  Serious: Yes (Death, Hospitalization, Congenital Anomaly, Other)
  Sender: FDA-Public Use
  Company Number: DE-AUROBINDO-AUR-APL-2012-02227

PATIENT

DRUGS (12)
  1. METFORMIN [Suspect]
     Active Substance: METFORMIN HYDROCHLORIDE
     Indication: POLYCYSTIC OVARIES
     Dosage: UNK
     Route: 065
  2. L-THYROXIN [Concomitant]
     Active Substance: LEVOTHYROXINE SODIUM
     Indication: HYPOTHYROIDISM
     Dosage: 100 ?G,DAILY,
     Route: 064
     Dates: start: 20100913, end: 20110626
  3. METFORMIN [Suspect]
     Active Substance: METFORMIN HYDROCHLORIDE
     Indication: GLUCOSE TOLERANCE IMPAIRED
     Dosage: UNK UNK,UNK,
     Route: 064
     Dates: start: 201009, end: 201011
  4. APSOMOL [Concomitant]
     Active Substance: ALBUTEROL
     Indication: BRONCHITIS
     Dosage: UNK UNK,UNK,13.1-13.6 GESTATIONAL WEEK
     Route: 064
     Dates: start: 20101220, end: 20101225
  5. CITIRIZIN [Concomitant]
     Indication: HYPERSENSITIVITY
     Dosage: UNK UNK,UNK,
     Route: 064
  6. FOLIO FORTE [Concomitant]
     Active Substance: FOLIC ACID\VITAMINS
     Indication: PROPHYLAXIS OF NEURAL TUBE DEFECT
     Dosage: .8 MG,DAILY,
     Route: 064
     Dates: start: 20100919, end: 20110404
  7. CETIRIZINE [Suspect]
     Active Substance: CETIRIZINE HYDROCHLORIDE
     Indication: DERMATITIS ALLERGIC
     Dosage: UNK
     Route: 065
     Dates: start: 2010, end: 2010
  8. UTROGEST [Concomitant]
     Active Substance: PROGESTERONE
     Indication: POLYCYSTIC OVARIES
     Dosage: 100 MG,DAILY,
     Route: 064
     Dates: start: 20100912, end: 20101114
  9. EBENOL [Concomitant]
     Indication: HYPERSENSITIVITY
     Dosage: UNK UNK,UNK,0-8.3 GESTATIONAL WEEK
     Route: 064
     Dates: start: 20101114, end: 20101117
  10. KADEFUNGIN [Concomitant]
     Active Substance: CLOTRIMAZOLE
     Indication: FUNGAL INFECTION
     Dosage: UNK UNK,UNK,2ND TRIMESTER
     Route: 064
  11. EMSER SALT [Concomitant]
     Indication: SELF-MEDICATION
     Dosage: UNK UNK,UNK,
     Route: 064
     Dates: start: 20101220, end: 20101226
  12. FOLIC ACID. [Concomitant]
     Active Substance: FOLIC ACID
     Indication: PROPHYLAXIS OF NEURAL TUBE DEFECT
     Dosage: 0-28.1 GESTATIONAL WEEK, DAILY DOSE: 0.8 MG/D
     Route: 064
     Dates: start: 201010, end: 20110404

REACTIONS (9)
  - Hypoplastic left heart syndrome [Fatal]
  - Necrotising colitis [Unknown]
  - Foetal heart rate deceleration abnormality [Unknown]
  - Blood pressure decreased [Fatal]
  - Low birth weight baby [Unknown]
  - Turner^s syndrome [Not Recovered/Not Resolved]
  - Maternal exposure timing unspecified [Unknown]
  - Maternal exposure during pregnancy [Unknown]
  - Bradycardia [Fatal]

NARRATIVE: CASE EVENT DATE: 201010
